FAERS Safety Report 25363073 (Version 1)
Quarter: 2025Q2

REPORT INFORMATION
  Report Type: Spontaneous
  Country: US (occurrence: US)
  Receive Date: 20250527
  Receipt Date: 20250527
  Transmission Date: 20250716
  Serious: Yes (Hospitalization, Other)
  Sender: ABBVIE
  Company Number: US-ABBVIE-6294615

PATIENT
  Age: 87 Year
  Sex: Female

DRUGS (1)
  1. REFRESH PLUS [Suspect]
     Active Substance: CARBOXYMETHYLCELLULOSE SODIUM
     Indication: Dry eye
     Route: 047

REACTIONS (10)
  - Brain neoplasm [Unknown]
  - Product quality issue [Not Recovered/Not Resolved]
  - Deafness [Unknown]
  - Cranial nerve disorder [Unknown]
  - Anosmia [Unknown]
  - Speech disorder [Unknown]
  - Ageusia [Unknown]
  - Diplopia [Unknown]
  - Femur fracture [Unknown]
  - Dyspnoea [Unknown]

NARRATIVE: CASE EVENT DATE: 20250301
